FAERS Safety Report 20207913 (Version 1)
Quarter: 2021Q4

REPORT INFORMATION
  Report Type: Spontaneous
  Country: CH (occurrence: CH)
  Receive Date: 20211220
  Receipt Date: 20211220
  Transmission Date: 20220304
  Serious: Yes (Other)
  Sender: FDA-Public Use
  Company Number: CH-009507513-2112CHE006223

PATIENT
  Age: 65 Year
  Sex: Female

DRUGS (1)
  1. KEYTRUDA [Suspect]
     Active Substance: PEMBROLIZUMAB
     Indication: Nasopharyngeal cancer
     Dosage: UNK
     Dates: end: 2021

REACTIONS (2)
  - Malignant neoplasm progression [Unknown]
  - Deafness bilateral [Unknown]

NARRATIVE: CASE EVENT DATE: 20211025
